FAERS Safety Report 26148004 (Version 1)
Quarter: 2025Q4

REPORT INFORMATION
  Report Type: Spontaneous
  Country: GB (occurrence: GB)
  Receive Date: 20251212
  Receipt Date: 20251212
  Transmission Date: 20260117
  Serious: Yes (Life-Threatening, Hospitalization, Other)
  Sender: ACCORD
  Company Number: None

PATIENT
  Age: 22 Year
  Sex: Female

DRUGS (6)
  1. FLUOXETINE [Suspect]
     Active Substance: FLUOXETINE HYDROCHLORIDE
     Indication: Eating disorder
     Dates: start: 20200111, end: 20230925
  2. YASMIN [Concomitant]
     Active Substance: DROSPIRENONE\ETHINYL ESTRADIOL
     Indication: Dysmenorrhoea
  3. FERROUS SULFATE [Concomitant]
     Active Substance: FERROUS SULFATE
     Indication: Anaemia
     Dates: start: 20230301
  4. CLONAZEPAM [Concomitant]
     Active Substance: CLONAZEPAM
     Dates: start: 20201220, end: 20210321
  5. PROPRANOLOL [Concomitant]
     Active Substance: PROPRANOLOL HYDROCHLORIDE
     Indication: Adverse drug reaction
     Dates: start: 20230323
  6. PROMETHAZINE [Concomitant]
     Active Substance: PROMETHAZINE HYDROCHLORIDE
     Indication: Adverse drug reaction
     Dates: start: 20201112

REACTIONS (8)
  - Akathisia [Unknown]
  - Agitation [Recovered/Resolved with Sequelae]
  - Intentional self-injury [Not Recovered/Not Resolved]
  - Suicidal behaviour [Recovered/Resolved with Sequelae]
  - Dissociation [Recovered/Resolved with Sequelae]
  - Hallucination [Recovering/Resolving]
  - Mental status changes [Unknown]
  - Personality change [Unknown]

NARRATIVE: CASE EVENT DATE: 20200420
